FAERS Safety Report 6279302-2 (Version None)
Quarter: 2009Q3

REPORT INFORMATION
  Report Type: 
  Country: None (occurrence: None)
  Receive Date: 20090723
  Receipt Date: 20080925
  Transmission Date: 20100115
  Serious: No
  Sender: FDA-Public Use
  Company Number: US-AMGEN-KDL298400

PATIENT
  Age: 66 Year
  Sex: Female

DRUGS (7)
  1. PROCRIT [Suspect]
     Indication: PRE-EXISTING DISEASE
     Route: 058
     Dates: start: 20070101
  2. METOPROLOL SUCCINATE [Concomitant]
  3. EXJADE [Concomitant]
  4. LASIX [Concomitant]
  5. ALLOPURINOL [Concomitant]
  6. AMBIEN [Concomitant]
  7. XANAX [Concomitant]

REACTIONS (2)
  - BLOOD PRODUCT TRANSFUSION DEPENDENT [None]
  - THERAPEUTIC RESPONSE DECREASED [None]
